FAERS Safety Report 5206152-8 (Version None)
Quarter: 2007Q1

REPORT INFORMATION
  Report Type: 
  Country: None (occurrence: None)
  Receive Date: 20070108
  Receipt Date: 20061228
  Transmission Date: 20070707
  Serious: Yes (Other)
  Sender: FDA-Public Use
  Company Number: 15430

PATIENT
  Age: 71 Year
  Sex: Female

DRUGS (3)
  1. NIPENT [Suspect]
     Indication: LYMPHOMA
     Dates: end: 20060830
  2. VINCRISTINE [Suspect]
     Dates: start: 20061111
  3. CYCLOPHOSPHAMIDE [Suspect]
     Indication: LYMPHOMA

REACTIONS (7)
  - ATRIAL FIBRILLATION [None]
  - BALANCE DISORDER [None]
  - DYSPNOEA [None]
  - MENTAL STATUS CHANGES [None]
  - NAUSEA [None]
  - NEUROLOGICAL SYMPTOM [None]
  - PULMONARY OEDEMA [None]
